FAERS Safety Report 4678666-0 (Version None)
Quarter: 2005Q2

REPORT INFORMATION
  Report Type: 
  Country: None (occurrence: None)
  Receive Date: 20050527
  Receipt Date: 20050512
  Transmission Date: 20051028
  Serious: Yes (Other)
  Sender: FDA-Public Use
  Company Number: 2005-0008337

PATIENT
  Age: 31 Year
  Sex: Male

DRUGS (2)
  1. TRUVADA [Suspect]
     Indication: PROPHYLAXIS AGAINST HIV INFECTION
     Dosage: 1 IN 1 D, ORAL
     Route: 048
     Dates: start: 20050505, end: 20050506
  2. LEXIVA [Concomitant]

REACTIONS (5)
  - EYE SWELLING [None]
  - NAUSEA [None]
  - PHARYNGEAL OEDEMA [None]
  - THROAT IRRITATION [None]
  - VOMITING [None]
